FAERS Safety Report 18801690 (Version 1)
Quarter: 2021Q1

REPORT INFORMATION
  Report Type: Spontaneous
  Country: HR (occurrence: HR)
  Receive Date: 20210128
  Receipt Date: 20210128
  Transmission Date: 20210419
  Serious: Yes (Other)
  Sender: FDA-Public Use
  Company Number: HR-TEVA-2021-HR-1872966

PATIENT
  Age: 20 Year
  Sex: Male
  Weight: 55 kg

DRUGS (2)
  1. DIAZEPAM. [Suspect]
     Active Substance: DIAZEPAM
     Dosage: 150MG
     Route: 048
     Dates: start: 20201209, end: 20201209
  2. OLANZAPIN [Suspect]
     Active Substance: OLANZAPINE
     Dosage: 80MG
     Route: 048
     Dates: start: 20201209, end: 20201209

REACTIONS (3)
  - Intentional overdose [Unknown]
  - Suicide attempt [Unknown]
  - Loss of consciousness [Unknown]

NARRATIVE: CASE EVENT DATE: 20201209
